FAERS Safety Report 10208164 (Version 2)
Quarter: 2014Q2

REPORT INFORMATION
  Report Type: Report from Study
  Country: US (occurrence: US)
  Receive Date: 20140530
  Receipt Date: 20140530
  Transmission Date: 20141212
  Serious: Yes (Other)
  Sender: FDA-Public Use
  Company Number: US-IPSEN BIOPHARMACEUTICALS, INC.-2011-0476

PATIENT
  Age: 11 Year
  Sex: Male
  Weight: 33.3 kg

DRUGS (4)
  1. INCRELEX [Suspect]
     Indication: INSULIN-LIKE GROWTH FACTOR DECREASED
     Route: 065
     Dates: start: 20090314, end: 20090402
  2. INCRELEX [Suspect]
     Route: 065
     Dates: start: 20091116
  3. INCRELEX [Suspect]
     Route: 065
     Dates: start: 201003, end: 20100815
  4. INCRELEX [Suspect]
     Route: 065
     Dates: start: 20100816

REACTIONS (2)
  - Hyperglycaemia [Unknown]
  - Type 1 diabetes mellitus [Recovered/Resolved]
